FAERS Safety Report 23586097 (Version 1)
Quarter: 2024Q1

REPORT INFORMATION
  Report Type: Spontaneous
  Country: US (occurrence: US)
  Receive Date: 20240301
  Receipt Date: 20240301
  Transmission Date: 20240410
  Serious: Yes (Death, Life-Threatening, Other)
  Sender: FDA-Public Use
  Company Number: US-MYLANLABS-2024M1019740

PATIENT
  Age: 4 Year
  Sex: Female
  Weight: 12 kg

DRUGS (1)
  1. HEPARIN [Suspect]
     Active Substance: HEPARIN SODIUM
     Indication: Lung assist device therapy
     Dosage: UNK
     Route: 065

REACTIONS (4)
  - Death [Fatal]
  - Heparin-induced thrombocytopenia [Unknown]
  - Thrombosis [Unknown]
  - Platelet count decreased [Unknown]
